FAERS Safety Report 6981885-1 (Version None)
Quarter: 2010Q3

REPORT INFORMATION
  Report Type: 
  Country: None (occurrence: None)
  Receive Date: 20100914
  Receipt Date: 20091002
  Transmission Date: 20110219
  Serious: No
  Sender: FDA-Public Use
  Company Number: US-PFIZER INC-2009278960

PATIENT
  Sex: Female
  Weight: 43.1 kg

DRUGS (5)
  1. LYRICA [Suspect]
     Indication: FIBROMYALGIA
     Dosage: 75 MG, 1X/DAY
     Route: 048
     Dates: start: 20090923, end: 20090901
  2. LYRICA [Suspect]
     Indication: TEMPOROMANDIBULAR JOINT SYNDROME
  3. LYRICA [Suspect]
     Indication: PAIN
  4. FENTANYL [Concomitant]
     Dosage: UNK
  5. LORTAB [Concomitant]
     Dosage: UNK

REACTIONS (6)
  - ABDOMINAL DISCOMFORT [None]
  - DIZZINESS [None]
  - EUPHORIC MOOD [None]
  - ILLUSION [None]
  - INSOMNIA [None]
  - PRURITUS [None]
